FAERS Safety Report 5420987-8 (Version None)
Quarter: 2007Q3

REPORT INFORMATION
  Report Type: 
  Country: None (occurrence: None)
  Receive Date: 20070821
  Receipt Date: 20070816
  Transmission Date: 20080115
  Serious: Yes (Other)
  Sender: FDA-Public Use
  Company Number: HQWYE520024MAY06

PATIENT
  Sex: Male

DRUGS (14)
  1. EFFEXOR [Suspect]
     Indication: MAJOR DEPRESSION
     Route: 048
     Dates: start: 19970101
  2. EFFEXOR [Suspect]
     Indication: SOCIAL PHOBIA
     Route: 048
  3. EFFEXOR [Suspect]
     Route: 048
     Dates: start: 19980101, end: 19980101
  4. EFFEXOR [Suspect]
     Route: 048
     Dates: start: 19980101
  5. EFFEXOR [Suspect]
     Route: 048
     Dates: start: 19990101, end: 19990101
  6. EFFEXOR [Suspect]
     Route: 048
     Dates: start: 19990101
  7. EFFEXOR [Suspect]
     Route: 048
  8. ASPIRIN [Concomitant]
     Dosage: UNKNOWN, TAKEN ON OCCASION
     Route: 048
  9. POLARAMINE [Concomitant]
     Dosage: UNKNOWN DOSAGE, TAKEN EVERY NIGHT
     Route: 048
  10. EFFEXOR XR [Suspect]
     Indication: MAJOR DEPRESSION
     Dosage: 675 MG DAILY
     Route: 048
  11. EFFEXOR XR [Suspect]
     Indication: SOCIAL PHOBIA
     Dosage: SELF-MEDICATING WITH VARIOUS DOSES MAXIMUM DOSE 900 MG DAILY
     Route: 048
  12. EFFEXOR XR [Suspect]
     Route: 048
     Dates: start: 20060522
  13. CLONAZEPAM [Concomitant]
     Dosage: 1/4 0.5MG AM, 1/4 0.5MG PM
     Route: 048
  14. PARACETAMOL [Concomitant]
     Dosage: UNKNOWN, TAKEN ON OCCASION
     Route: 048

REACTIONS (12)
  - ANXIETY [None]
  - DRUG ABUSER [None]
  - DRUG DEPENDENCE [None]
  - DRUG INEFFECTIVE [None]
  - DRUG WITHDRAWAL SYNDROME [None]
  - FATIGUE [None]
  - HYPERTENSION [None]
  - INSOMNIA [None]
  - INTENTIONAL OVERDOSE [None]
  - MOOD ALTERED [None]
  - PRURITUS [None]
  - SEDATION [None]
